FAERS Safety Report 11200376 (Version 1)
Quarter: 2015Q2

REPORT INFORMATION
  Report Type: Spontaneous
  Country: US (occurrence: US)
  Receive Date: 20150618
  Receipt Date: 20150618
  Transmission Date: 20150821
  Serious: No
  Sender: FDA-Public Use
  Company Number: US-ALLERGAN-1415385US

PATIENT
  Age: 46 Year
  Sex: Male

DRUGS (1)
  1. ZYMAXID [Suspect]
     Active Substance: GATIFLOXACIN
     Indication: ULCERATIVE KERATITIS
     Dosage: 1 GTT, Q1/2HR
     Route: 047
     Dates: start: 20140709

REACTIONS (3)
  - Inappropriate schedule of drug administration [Unknown]
  - Vision blurred [Not Recovered/Not Resolved]
  - Off label use [Unknown]

NARRATIVE: CASE EVENT DATE: 20140709
